FAERS Safety Report 19273513 (Version 1)
Quarter: 2021Q2

REPORT INFORMATION
  Report Type: Spontaneous
  Country: DE (occurrence: DE)
  Receive Date: 20210519
  Receipt Date: 20210519
  Transmission Date: 20210717
  Serious: Yes (Hospitalization, Other)
  Sender: FDA-Public Use
  Company Number: DE-AUROBINDO-AUR-APL-2021-019948

PATIENT
  Age: 32 Year
  Sex: Male

DRUGS (5)
  1. FLUCLOXACILLIN [Suspect]
     Active Substance: FLUCLOXACILLIN
     Indication: ENDOCARDITIS
     Dosage: 2 GRAM, DAILY (4 ? 2 G/DAY ON DAY 1)
     Route: 065
  2. GENTAMICIN. [Suspect]
     Active Substance: GENTAMICIN
     Indication: ENDOCARDITIS
     Dosage: 240 MILLIGRAM, DAILY (1 ? 240 MG/DAY ON DAY 1)
     Route: 065
  3. AMPICILLIN AND SULBACTAM [Suspect]
     Active Substance: AMPICILLIN SODIUM\SULBACTAM SODIUM
     Indication: ENDOCARDITIS
     Dosage: 3 GRAM, DAILY (4 ? 3 G/DAY ON DAY 1)
     Route: 065
  4. AMPICILLIN AND SULBACTAM [Suspect]
     Active Substance: AMPICILLIN SODIUM\SULBACTAM SODIUM
     Dosage: 3 GRAM, DAILY (4 ? 3 G/DAY ON DAY 3)
     Route: 065
  5. GENTAMICIN. [Suspect]
     Active Substance: GENTAMICIN
     Dosage: 320 MILLIGRAM, DAILY (ON DAY 3)
     Route: 065

REACTIONS (2)
  - Liver function test increased [Recovering/Resolving]
  - Leptospirosis [Recovering/Resolving]
